FAERS Safety Report 13423243 (Version 1)
Quarter: 2017Q2

REPORT INFORMATION
  Report Type: Spontaneous
  Country: US (occurrence: US)
  Receive Date: 20170410
  Receipt Date: 20170410
  Transmission Date: 20170830
  Serious: Yes (Disabling)
  Sender: FDA-Public Use
  Company Number: None

PATIENT
  Age: 61 Year
  Sex: Male
  Weight: 99.9 kg

DRUGS (4)
  1. PREDNISONE. [Concomitant]
     Active Substance: PREDNISONE
  2. LISINOPRIL. [Concomitant]
     Active Substance: LISINOPRIL
  3. ALBUTEROL INHALER [Concomitant]
     Active Substance: ALBUTEROL
  4. LEVAQUIN [Suspect]
     Active Substance: LEVOFLOXACIN
     Indication: BRONCHITIS
     Route: 048

REACTIONS (8)
  - Cyst drainage [None]
  - Facial paralysis [None]
  - Paraesthesia [None]
  - Hypoaesthesia [None]
  - Viral upper respiratory tract infection [None]
  - Gait disturbance [None]
  - Neuropathy peripheral [None]
  - Cyst [None]

NARRATIVE: CASE EVENT DATE: 20170217
